FAERS Safety Report 5585573-8 (Version None)
Quarter: 2008Q1

REPORT INFORMATION
  Report Type: 
  Country: None (occurrence: None)
  Receive Date: 20080109
  Receipt Date: 20080103
  Transmission Date: 20080703
  Serious: Yes (Other)
  Sender: FDA-Public Use
  Company Number: B0398877A

PATIENT
  Age: 25 Year
  Sex: Female

DRUGS (2)
  1. PAROXETINE [Suspect]
     Indication: PANIC ATTACK
     Route: 065
     Dates: start: 20011004
  2. PAROXETINE HYDROCHLORIDE [Suspect]
     Route: 048

REACTIONS (16)
  - AGGRESSION [None]
  - AGITATION [None]
  - ANXIETY [None]
  - CRYING [None]
  - DEPRESSION [None]
  - DISTURBANCE IN ATTENTION [None]
  - HYPERHIDROSIS [None]
  - MEMORY IMPAIRMENT [None]
  - MOOD SWINGS [None]
  - NAUSEA [None]
  - NIGHTMARE [None]
  - SLEEP DISORDER [None]
  - SUICIDAL IDEATION [None]
  - TEARFULNESS [None]
  - VOMITING [None]
  - WITHDRAWAL SYNDROME [None]
